FAERS Safety Report 5256181-3 (Version None)
Quarter: 2007Q1

REPORT INFORMATION
  Report Type: 
  Country: None (occurrence: None)
  Receive Date: 20070306
  Receipt Date: 20070227
  Transmission Date: 20070707
  Serious: Yes (Other)
  Sender: FDA-Public Use
  Company Number: 2007UW03822

PATIENT
  Sex: Female

DRUGS (11)
  1. ARIMIDEX [Suspect]
     Route: 048
     Dates: start: 20040401
  2. CRESTOR [Concomitant]
     Route: 048
     Dates: start: 20050101
  3. METOPROLOL SUCCINATE [Concomitant]
     Route: 048
  4. EITOXIN [Concomitant]
     Indication: THYROID DISORDER
     Route: 048
  5. PARIET [Concomitant]
     Route: 048
  6. TRANXENE [Concomitant]
     Indication: ANXIETY
     Route: 048
  7. DETROL LA [Concomitant]
     Route: 048
  8. CALCIUM [Concomitant]
     Route: 048
  9. VITAMIN D [Concomitant]
     Route: 048
  10. TRIAZOLAM [Concomitant]
     Route: 048
  11. PLAVIX [Concomitant]
     Dates: start: 20030101

REACTIONS (4)
  - BONE PAIN [None]
  - FLUID RETENTION [None]
  - NON-HODGKIN'S LYMPHOMA [None]
  - PAIN [None]
